FAERS Safety Report 9342742 (Version 1)
Quarter: 2013Q2

REPORT INFORMATION
  Report Type: Spontaneous
  Country: RU (occurrence: RU)
  Receive Date: 20130611
  Receipt Date: 20130611
  Transmission Date: 20140414
  Serious: Yes (Other)
  Sender: FDA-Public Use
  Company Number: RU-BAYER-2013-068596

PATIENT
  Sex: 0

DRUGS (2)
  1. QLAIRA [Suspect]
     Indication: ORAL CONTRACEPTION
     Dosage: UNK
     Dates: start: 201304, end: 201305
  2. QLAIRA [Suspect]
     Indication: DYSFUNCTIONAL UTERINE BLEEDING

REACTIONS (1)
  - Ophthalmic herpes simplex [Not Recovered/Not Resolved]
